FAERS Safety Report 4372174-2 (Version None)
Quarter: 2004Q2

REPORT INFORMATION
  Report Type: 
  Country: None (occurrence: None)
  Receive Date: 20040602
  Receipt Date: 20040520
  Transmission Date: 20050107
  Serious: No
  Sender: FDA-Public Use
  Company Number: 2004UW10154

PATIENT
  Age: 69 Year
  Sex: Male

DRUGS (6)
  1. CRESTOR [Suspect]
     Indication: HYPERLIPIDAEMIA
     Dosage: 10 MG DAILY PO
     Route: 048
     Dates: start: 20031009, end: 20031013
  2. SYNTHROID [Concomitant]
     Route: 048
  3. NORVASC [Concomitant]
  4. VASERETIC [Concomitant]
  5. METOPROLOL TARTRATE [Concomitant]
  6. COUMADIN [Concomitant]

REACTIONS (5)
  - CONFUSIONAL STATE [None]
  - FALL [None]
  - HEAD INJURY [None]
  - LACERATION [None]
  - MEMORY IMPAIRMENT [None]
